FAERS Safety Report 4810074-1 (Version None)
Quarter: 2005Q4

REPORT INFORMATION
  Report Type: 
  Country: None (occurrence: None)
  Receive Date: 20051021
  Receipt Date: 20051021
  Transmission Date: 20060501
  Serious: Yes (Disabling)
  Sender: FDA-Public Use
  Company Number: None

PATIENT
  Sex: Female
  Weight: 86.1834 kg

DRUGS (3)
  1. KETOPROFEN, LIDOCAINE, AND HYDROCODONE CREAM COMPOUNDED PRODUCT [Suspect]
     Indication: ANALGESIC EFFECT
     Dosage: APPLY TOPICALLY EVERY 8 HOURS
     Route: 061
  2. M.V.I. [Concomitant]
  3. NAPROXEN SODIUM [Concomitant]

REACTIONS (9)
  - APPLICATION SITE REACTION [None]
  - ARTHRALGIA [None]
  - CONDITION AGGRAVATED [None]
  - DRUG EFFECT DECREASED [None]
  - OEDEMA PERIPHERAL [None]
  - PAIN [None]
  - PERIPHERAL COLDNESS [None]
  - PIGMENTATION DISORDER [None]
  - SENSORY DISTURBANCE [None]
